FAERS Safety Report 17545195 (Version 1)
Quarter: 2020Q1

REPORT INFORMATION
  Report Type: Spontaneous
  Country: US (occurrence: US)
  Receive Date: 20200316
  Receipt Date: 20200316
  Transmission Date: 20200409
  Serious: Yes (Hospitalization, Other)
  Sender: FDA-Public Use
  Company Number: US-009507513-2003USA004648

PATIENT
  Sex: Female

DRUGS (1)
  1. ISENTRESS [Suspect]
     Active Substance: RALTEGRAVIR POTASSIUM
     Indication: HIV INFECTION
     Dosage: 2 TABLETS DAILY
     Route: 048
     Dates: start: 202001, end: 20200221

REACTIONS (3)
  - Dysphagia [Unknown]
  - Hypertensive emergency [Unknown]
  - Product size issue [Unknown]

NARRATIVE: CASE EVENT DATE: 2020
